FAERS Safety Report 6785710-3 (Version None)
Quarter: 2010Q2

REPORT INFORMATION
  Report Type: 
  Country: None (occurrence: None)
  Receive Date: 20100623
  Receipt Date: 20100610
  Transmission Date: 20101027
  Serious: Yes (Other)
  Sender: FDA-Public Use
  Company Number: PHHY2009AU52184

PATIENT
  Sex: Male

DRUGS (5)
  1. LAMISIL [Suspect]
     Indication: ONYCHOMYCOSIS
     Dosage: 250 MG DAILY
     Route: 048
     Dates: start: 20090901
  2. LAMISIL [Suspect]
     Dosage: ONE DOSE EVERY SECOND DAY
  3. LAMISIL [Suspect]
     Dosage: 250 MG ONCE DAILY
  4. FISH OIL [Concomitant]
  5. INNER HEALTH POWDER [Concomitant]

REACTIONS (18)
  - ABDOMINAL DISCOMFORT [None]
  - ANXIETY [None]
  - ARTHRALGIA [None]
  - DECREASED APPETITE [None]
  - DEPRESSION [None]
  - DISTURBANCE IN ATTENTION [None]
  - DRY MOUTH [None]
  - DYSGEUSIA [None]
  - ERUCTATION [None]
  - FEELING ABNORMAL [None]
  - GASTRIC DISORDER [None]
  - GASTROOESOPHAGEAL REFLUX DISEASE [None]
  - INSOMNIA [None]
  - MENTAL DISORDER [None]
  - NAUSEA [None]
  - PAIN IN EXTREMITY [None]
  - PANIC ATTACK [None]
  - SUICIDAL IDEATION [None]
